FAERS Safety Report 8599236-8 (Version None)
Quarter: 2012Q3

REPORT INFORMATION
  Report Type: 
  Country: None (occurrence: None)
  Receive Date: 20120816
  Receipt Date: 20111220
  Transmission Date: 20120928
  Serious: No
  Sender: FDA-Public Use
  Company Number: US-AMGEN-USASP2011054127

PATIENT
  Age: 60 Year

DRUGS (2)
  1. NEUPOGEN [Suspect]
     Indication: HAEMATOPOIETIC STEM CELL MOBILISATION
     Dosage: 1200 MUG, QD
     Dates: start: 20111015
  2. MOZOBIL [Concomitant]

REACTIONS (1)
  - DRUG INEFFECTIVE [None]
